FAERS Safety Report 9245541 (Version 1)
Quarter: 2013Q1

REPORT INFORMATION
  Report Type: Spontaneous
  Country: US (occurrence: None)
  Receive Date: 20121130
  Receipt Date: 20121130
  Transmission Date: 20140127
  Serious: Yes (Hospitalization)
  Sender: FDA-Public Use
  Company Number: 342918

PATIENT
  Sex: 0

DRUGS (2)
  1. NOVOLOG MIX 70/30 [Suspect]
     Indication: TYPE 2 DIABETES MELLITUS
     Dosage: 28 U, QD, SUBCUTANEOUS
     Route: 058
     Dates: start: 201105, end: 201106
  2. METFORMIN (METFORMIN) [Concomitant]

REACTIONS (1)
  - Blood glucose increased [None]
